FAERS Safety Report 6751390-6 (Version None)
Quarter: 2010Q2

REPORT INFORMATION
  Report Type: 
  Country: None (occurrence: None)
  Receive Date: 20100602
  Receipt Date: 20100528
  Transmission Date: 20101027
  Serious: Yes (Death)
  Sender: FDA-Public Use
  Company Number: DE-SANOFI-AVENTIS-2010SA030529

PATIENT
  Sex: Male

DRUGS (5)
  1. PLAVIX [Suspect]
     Route: 048
  2. BETA BLOCKING AGENTS [Concomitant]
     Indication: DRUG USE FOR UNKNOWN INDICATION
  3. CANDESARTAN CILEXETIL [Concomitant]
     Indication: DRUG USE FOR UNKNOWN INDICATION
  4. LEVOTHYROXINE SODIUM [Concomitant]
     Indication: DRUG USE FOR UNKNOWN INDICATION
  5. FUROSEMID [Concomitant]
     Indication: DRUG USE FOR UNKNOWN INDICATION

REACTIONS (4)
  - CIRCULATORY COLLAPSE [None]
  - DRUG INTOLERANCE [None]
  - ECZEMA [None]
  - PRURITUS [None]
